FAERS Safety Report 9825152 (Version 2)
Quarter: 2014Q1

REPORT INFORMATION
  Report Type: Report from Study
  Country: US (occurrence: US)
  Receive Date: 20140117
  Receipt Date: 20140129
  Transmission Date: 20141002
  Serious: Yes (Hospitalization)
  Sender: FDA-Public Use
  Company Number: US-JNJFOC-20140104888

PATIENT
  Age: 79 Year
  Sex: Female
  Weight: 81 kg

DRUGS (8)
  1. XARELTO [Suspect]
     Indication: CEREBROVASCULAR ACCIDENT PROPHYLAXIS
     Route: 048
     Dates: start: 20131204, end: 20140104
  2. XARELTO [Suspect]
     Indication: ATRIAL FIBRILLATION
     Route: 048
     Dates: start: 20131204, end: 20140104
  3. LANOXIN [Suspect]
     Indication: ATRIAL FIBRILLATION
     Route: 065
     Dates: start: 20131204
  4. AMLODIPINE [Concomitant]
     Indication: ATRIAL FIBRILLATION
     Route: 065
     Dates: start: 20120726
  5. COREG [Concomitant]
     Indication: HYPERTENSION
     Route: 065
     Dates: start: 20120726
  6. BENAZEPRIL [Concomitant]
     Indication: HYPERTENSION
     Route: 065
     Dates: start: 20120726
  7. LOSARTAN [Concomitant]
     Indication: HYPERTENSION
     Route: 065
     Dates: start: 20120726
  8. LIPITOR [Concomitant]
     Indication: DYSLIPIDAEMIA
     Route: 065
     Dates: start: 2013

REACTIONS (2)
  - Diverticulum [Recovered/Resolved]
  - Haemoglobin decreased [Unknown]
